FAERS Safety Report 5179334-1 (Version None)
Quarter: 2006Q4

REPORT INFORMATION
  Report Type: 
  Country: None (occurrence: None)
  Receive Date: 20061219
  Receipt Date: 20060328
  Transmission Date: 20070319
  Serious: Yes (Death, Hospitalization)
  Sender: FDA-Public Use
  Company Number: DE-GLAXOSMITHKLINE-B0418656A

PATIENT
  Age: 73 Year
  Sex: Male
  Weight: 69 kg

DRUGS (1)
  1. DUTASTERIDE [Suspect]
     Indication: NEOPLASM PROPHYLAXIS
     Dosage: .5MG PER DAY
     Route: 048
     Dates: start: 20030304

REACTIONS (3)
  - AORTIC ANEURYSM [None]
  - ARRHYTHMIA [None]
  - GENERAL PHYSICAL HEALTH DETERIORATION [None]
